FAERS Safety Report 6124804-2 (Version None)
Quarter: 2009Q1

REPORT INFORMATION
  Report Type: 
  Country: None (occurrence: None)
  Receive Date: 20090319
  Receipt Date: 20090318
  Transmission Date: 20090719
  Serious: Yes (Other)
  Sender: FDA-Public Use
  Company Number: US-BAYER-200814223BCC

PATIENT
  Age: 79 Year
  Sex: Male
  Weight: 70 kg

DRUGS (5)
  1. ASPIRIN [Suspect]
     Indication: PROPHYLAXIS
     Dosage: AS USED: 81 MG  UNIT DOSE: 81 MG
     Dates: start: 20060101
  2. NIFEDIPINE [Concomitant]
  3. DOXAZOSIN MESYLATE [Concomitant]
  4. HYDROCHLOROTHIAZIDE [Concomitant]
  5. LISINOPRIL [Concomitant]

REACTIONS (3)
  - EPISTAXIS [None]
  - GINGIVAL BLEEDING [None]
  - PHARYNGEAL HAEMORRHAGE [None]
